FAERS Safety Report 8344524-3 (Version None)
Quarter: 2012Q1

REPORT INFORMATION
  Report Type: 
  Country: None (occurrence: None)
  Receive Date: 20120315
  Receipt Date: 20110412
  Transmission Date: 20120608
  Serious: No
  Sender: FDA-Public Use
  Company Number: PHHY2011US24421

PATIENT
  Age: 44 Year
  Sex: Male
  Weight: 81.6 kg

DRUGS (5)
  1. GILENYA [Suspect]
     Indication: MULTIPLE SCLEROSIS
     Dosage: 0.5 MG, QD, ORAL
     Route: 048
     Dates: start: 20110322
  2. XANAX [Concomitant]
  3. VITAMIN D [Concomitant]
  4. SEROQUEL [Concomitant]
  5. PRAVACHOL [Concomitant]

REACTIONS (6)
  - HEADACHE [None]
  - PARAESTHESIA [None]
  - HEART RATE DECREASED [None]
  - CHILLS [None]
  - DIZZINESS [None]
  - NAUSEA [None]
